FAERS Safety Report 7088455-8 (Version None)
Quarter: 2010Q4

REPORT INFORMATION
  Report Type: 
  Country: None (occurrence: None)
  Receive Date: 20101108
  Receipt Date: 20101104
  Transmission Date: 20110411
  Serious: Yes (Life-Threatening, Hospitalization, Other)
  Sender: FDA-Public Use
  Company Number: JP-PFIZER INC-2010068745

PATIENT
  Age: 65 Year
  Sex: Male
  Weight: 65 kg

DRUGS (9)
  1. SUTENT [Suspect]
     Indication: RENAL CELL CARCINOMA
     Dosage: 50 MG, 1X/DAY
     Route: 048
     Dates: start: 20100518, end: 20100602
  2. NEORAL [Interacting]
     Indication: RENAL TRANSPLANT
     Dosage: 100 MG, 2X/DAY
     Route: 048
  3. PREDNISOLONE [Concomitant]
     Dosage: 5 MG, 1X/DAY
     Route: 048
  4. URINORM [Concomitant]
     Indication: HYPERURICAEMIA
     Dosage: 25 MG, 1X/DAY
     Route: 048
  5. FLUVASTATIN [Concomitant]
     Indication: HYPERCHOLESTEROLAEMIA
     Dosage: 60 MG, 2X/DAY
     Route: 048
  6. RHUBARB [Concomitant]
     Indication: CONSTIPATION
     Dosage: 1 G, 1X/DAY
     Route: 048
  7. SENNOSIDE A [Concomitant]
     Indication: CONSTIPATION
     Dosage: 24 MG, 1X/DAY
     Route: 048
  8. LENDORMIN [Concomitant]
     Indication: INSOMNIA
     Dosage: 0.25 MG, 1X/DAY
     Route: 048
  9. PARIET [Concomitant]
     Indication: REFLUX OESOPHAGITIS
     Dosage: 10 MG, 1X/DAY
     Route: 048

REACTIONS (9)
  - DISSEMINATED INTRAVASCULAR COAGULATION [None]
  - DRUG INTERACTION [None]
  - DRUG LEVEL DECREASED [None]
  - HEPATIC FUNCTION ABNORMAL [None]
  - HYPOTHYROIDISM [None]
  - PLATELET COUNT DECREASED [None]
  - PYREXIA [None]
  - RENAL IMPAIRMENT [None]
  - WHITE BLOOD CELL COUNT DECREASED [None]
